FAERS Safety Report 16260335 (Version 1)
Quarter: 2019Q2

REPORT INFORMATION
  Report Type: Spontaneous
  Country: SE (occurrence: SE)
  Receive Date: 20190501
  Receipt Date: 20190501
  Transmission Date: 20190711
  Serious: Yes (Hospitalization)
  Sender: FDA-Public Use
  Company Number: SE-TEVA-2019-SE-1043424

PATIENT
  Age: 82 Year
  Sex: Female

DRUGS (7)
  1. METOPROLOL. [Suspect]
     Active Substance: METOPROLOL
     Dosage: PRESCRIBED DOSE: 1ST AT 08
  2. DUROFERON [Suspect]
     Active Substance: FERROUS SULFATE
     Dosage: PRESCRIBED DOSE: 100 MG AT 08
  3. SODIUM HYDROGEN CARBONATE [Suspect]
     Active Substance: SODIUM BICARBONATE
     Dosage: PRESCRIBED DOSE: 1G AT 08, 1 KL 12, 1 G AT 16 AND 1G IN THE EVENING
  4. AMLORATIO [Suspect]
     Active Substance: AMLODIPINE BESYLATE
     Dosage: PRESCRIBED DOSE: 5 MG AT 08
  5. LASIX [Suspect]
     Active Substance: FUROSEMIDE
     Dosage: PRESCRIBED DOSE: 60 MG AT 08
  6. SIMVASTATIN. [Suspect]
     Active Substance: SIMVASTATIN
     Dosage: PRESCRIBED DOSE: 20 MG IN THE EVENING
  7. LOPERAMIDE [Suspect]
     Active Substance: LOPERAMIDE
     Dosage: PRESCRIBED DOSE: 2 PCS AT 08 AND 2 IN THE EVENING
     Route: 048

REACTIONS (4)
  - Product administration error [Unknown]
  - Dizziness [Unknown]
  - Accidental overdose [Unknown]
  - Confusional state [Unknown]

NARRATIVE: CASE EVENT DATE: 20111212
